FAERS Safety Report 9235461 (Version 1)
Quarter: 2013Q1

REPORT INFORMATION
  Report Type: Spontaneous
  Country: US (occurrence: None)
  Receive Date: 20121031
  Receipt Date: 20121031
  Transmission Date: 20140127
  Serious: No
  Sender: FDA-Public Use
  Company Number: PHEH2012US011653

PATIENT
  Age: 29 Year
  Sex: Female
  Weight: 65 kg

DRUGS (6)
  1. GILENYA [Suspect]
     Indication: MULTIPLE SCLEROSIS
     Route: 048
     Dates: start: 20120605
  2. AMBIEN (ZOLPIEM TARTRATE) [Concomitant]
  3. ADVIL (MEFENAMIC ACID) [Concomitant]
  4. VITAMIN B COMPLEX (CALCIUM PANTOTHENATE, NICOTINAMIDE, PYRIDOXINE HYDROCHLORIDE, RIBOFLAVIN, THIAMINE HYDROCHLORIDE) [Concomitant]
  5. FOLIC ACID (FOLIC ACID) [Concomitant]
  6. MIRENA (LEVONORGESTREL) [Concomitant]

REACTIONS (4)
  - Fatigue [None]
  - Muscle spasms [None]
  - Diarrhoea [None]
  - Dizziness [None]
